FAERS Safety Report 4815545-X (Version None)
Quarter: 2005Q4

REPORT INFORMATION
  Report Type: 
  Country: None (occurrence: None)
  Receive Date: 20051027
  Receipt Date: 20051017
  Transmission Date: 20060501
  Serious: Yes (Death, Other)
  Sender: FDA-Public Use
  Company Number: 2005059575

PATIENT
  Age: 59 Year
  Sex: Female
  Weight: 90 kg

DRUGS (5)
  1. NEURONTIN [Suspect]
     Indication: EPILEPSY
     Dosage: 1800 MG (600 MG, 3 IN 1 D), ORAL
     Route: 048
     Dates: start: 20050330
  2. VALPROIC ACID [Concomitant]
  3. ALL OTHER THERAPEUTIC PRODUCTS (ALL OTHER THERAPEUTIC PRODUCTS) [Concomitant]
  4. TRIMETAZIDINE (TRIMETAZIDINE) [Concomitant]
  5. SOLUPRED (PREDNISOLONE SODIUM SULFOBENZOATE) [Concomitant]

REACTIONS (6)
  - AGGRESSION [None]
  - GLIOBLASTOMA [None]
  - IRRITABILITY [None]
  - NEOPLASM RECURRENCE [None]
  - SOMNOLENCE [None]
  - SPEECH DISORDER [None]
